FAERS Safety Report 17148707 (Version 1)
Quarter: 2019Q4

REPORT INFORMATION
  Report Type: Spontaneous
  Country: US (occurrence: US)
  Receive Date: 20191213
  Receipt Date: 20191213
  Transmission Date: 20200122
  Serious: No
  Sender: FDA-Public Use
  Company Number: US-UCBSA-2016001109

PATIENT
  Sex: Female

DRUGS (1)
  1. VIMPAT [Suspect]
     Active Substance: LACOSAMIDE
     Indication: EPILEPSY
     Dosage: 250 MG, 2X/DAY (BID)
     Route: 048
     Dates: start: 20111026

REACTIONS (6)
  - Paraesthesia [Unknown]
  - Confusional state [Unknown]
  - Feeling abnormal [Unknown]
  - Tinnitus [Unknown]
  - Fatigue [Unknown]
  - Hypersensitivity [Unknown]
